FAERS Safety Report 6623814-6 (Version None)
Quarter: 2010Q1

REPORT INFORMATION
  Report Type: 
  Country: None (occurrence: None)
  Receive Date: 20100310
  Receipt Date: 20100225
  Transmission Date: 20100710
  Serious: Yes (Other)
  Sender: FDA-Public Use
  Company Number: PHHY2009IT46174

PATIENT
  Sex: Male

DRUGS (1)
  1. ZOMETA [Suspect]
     Indication: PALLIATIVE CARE
     Dosage: UNK
     Route: 042
     Dates: start: 20070203, end: 20090203

REACTIONS (1)
  - OSTEONECROSIS [None]
